FAERS Safety Report 5100941-6 (Version None)
Quarter: 2006Q3

REPORT INFORMATION
  Report Type: 
  Country: None (occurrence: None)
  Receive Date: 20060731
  Receipt Date: 20060614
  Transmission Date: 20061208
  Serious: No
  Sender: FDA-Public Use
  Company Number: 2006PV015713

PATIENT
  Age: 60 Year
  Sex: Female
  Weight: 97.0698 kg

DRUGS (6)
  1. BYETTA [Suspect]
     Indication: DIABETES MELLITUS NON-INSULIN-DEPENDENT
     Dosage: SEE IMAGE
     Route: 058
     Dates: start: 20060301, end: 20060401
  2. BYETTA [Suspect]
     Indication: DIABETES MELLITUS NON-INSULIN-DEPENDENT
     Dosage: SEE IMAGE
     Route: 058
     Dates: start: 20060401, end: 20060401
  3. BYETTA [Suspect]
     Indication: DIABETES MELLITUS NON-INSULIN-DEPENDENT
     Dosage: SEE IMAGE
     Route: 058
     Dates: start: 20060401, end: 20060501
  4. BYETTA [Suspect]
     Indication: DIABETES MELLITUS NON-INSULIN-DEPENDENT
     Dosage: SEE IMAGE
     Route: 058
     Dates: start: 20060501
  5. GLUCOPHAGE [Concomitant]
  6. AMARYL [Concomitant]

REACTIONS (9)
  - ABDOMINAL PAIN UPPER [None]
  - ANXIETY [None]
  - CONFUSIONAL STATE [None]
  - DIZZINESS [None]
  - HEADACHE [None]
  - HYPOGLYCAEMIA [None]
  - NAUSEA [None]
  - TREMOR [None]
  - WEIGHT DECREASED [None]
